FAERS Safety Report 25574551 (Version 1)
Quarter: 2025Q3

REPORT INFORMATION
  Report Type: Spontaneous
  Country: US (occurrence: US)
  Receive Date: 20250718
  Receipt Date: 20250718
  Transmission Date: 20251021
  Serious: No
  Sender: ABBVIE
  Company Number: US-ABBVIE-6367653

PATIENT
  Sex: Female

DRUGS (1)
  1. LO LOESTRIN FE [Suspect]
     Active Substance: ETHINYL ESTRADIOL\NORETHINDRONE ACETATE
     Indication: Contraception
     Route: 048
     Dates: start: 2015

REACTIONS (6)
  - Heavy menstrual bleeding [Unknown]
  - Muscle spasms [Unknown]
  - Off label use [Unknown]
  - Intermenstrual bleeding [Unknown]
  - Product colour issue [Unknown]
  - Incorrect dose administered [Unknown]
